FAERS Safety Report 9758638 (Version 1)
Quarter: 2013Q4

REPORT INFORMATION
  Report Type: Spontaneous
  Country: US (occurrence: None)
  Receive Date: 20131216
  Receipt Date: 20131216
  Transmission Date: 20140711
  Serious: Yes (Hospitalization)
  Sender: FDA-Public Use
  Company Number: RB-37016-2012

PATIENT
  Age: 19 Year
  Sex: Male

DRUGS (4)
  1. SUBOXONE [Suspect]
     Indication: DRUG DEPENDENCE
     Dosage: (DOSING DETAILS UNKNOWN UNKNOWN)
  2. HEROIN [Suspect]
     Indication: DRUG DEPENDENCE
     Dosage: (DOSING DETAILS UNKNOWN UNKNOWN)
  3. PERCOCET [Suspect]
     Indication: PRODUCT USED FOR UNKNOWN INDICATION
     Dosage: (DOSING DETAILS UNKNOWN UNKNOWN)
  4. XANAX [Suspect]
     Indication: PRODUCT USED FOR UNKNOWN INDICATION
     Dosage: (DOSING DETAILS UNKNOWN ORAL)

REACTIONS (2)
  - Drug ineffective [None]
  - Drug abuse [None]
